FAERS Safety Report 6851662-0 (Version None)
Quarter: 2010Q3

REPORT INFORMATION
  Report Type: 
  Country: None (occurrence: None)
  Receive Date: 20100717
  Receipt Date: 20080310
  Transmission Date: 20110219
  Serious: No
  Sender: FDA-Public Use
  Company Number: US-PFIZER INC-2008007021

PATIENT
  Sex: Female
  Weight: 65 kg

DRUGS (6)
  1. CHANTIX [Suspect]
     Indication: SMOKING CESSATION THERAPY
     Route: 048
     Dates: start: 20080114
  2. LIPITOR [Concomitant]
  3. FOSAMAX [Concomitant]
  4. VITAMINS [Concomitant]
  5. CHONDROITIN/GLUCOSAMINE [Concomitant]
  6. FIBRE, DIETARY [Concomitant]

REACTIONS (1)
  - RASH PAPULAR [None]
